FAERS Safety Report 6419537-9 (Version None)
Quarter: 2009Q4

REPORT INFORMATION
  Report Type: 
  Country: None (occurrence: None)
  Receive Date: 20091029
  Receipt Date: 20091019
  Transmission Date: 20100525
  Serious: Yes (Other)
  Sender: FDA-Public Use
  Company Number: BR-PFIZER INC-2009285068

PATIENT
  Age: 74 Year

DRUGS (3)
  1. DIABINESE [Suspect]
     Indication: DIABETES MELLITUS
     Dosage: 250 MG, 2 TAB 1X/DAY
     Route: 048
  2. DIABINESE [Suspect]
     Dosage: 250 MG, 1X/DAY
     Route: 048
  3. DIABINESE [Suspect]
     Dosage: UNK

REACTIONS (3)
  - DIABETES MELLITUS INADEQUATE CONTROL [None]
  - THYROID DISORDER [None]
  - VASCULAR GRAFT [None]
